FAERS Safety Report 6267172-8 (Version None)
Quarter: 2009Q3

REPORT INFORMATION
  Report Type: 
  Country: None (occurrence: None)
  Receive Date: 20090714
  Receipt Date: 20090708
  Transmission Date: 20100115
  Serious: Yes (Life-Threatening)
  Sender: FDA-Public Use
  Company Number: JP-ASTRAZENECA-2009SE02919

PATIENT
  Age: 65 Year
  Sex: Male

DRUGS (3)
  1. MEROPEN [Suspect]
     Indication: PSEUDOMONAS INFECTION
     Route: 041
  2. MEROPEN [Suspect]
     Route: 041
     Dates: start: 20090602
  3. TACROLIMUS [Concomitant]
     Indication: IMMUNOSUPPRESSION

REACTIONS (4)
  - ACUTE RESPIRATORY DISTRESS SYNDROME [None]
  - HEPATIC FUNCTION ABNORMAL [None]
  - RENAL IMPAIRMENT [None]
  - SHOCK [None]
